FAERS Safety Report 9797755 (Version 1)
Quarter: 2014Q1

REPORT INFORMATION
  Report Type: Spontaneous
  Country: US (occurrence: US)
  Receive Date: 20140106
  Receipt Date: 20140106
  Transmission Date: 20141002
  Serious: No
  Sender: FDA-Public Use
  Company Number: US-JNJFOC-20140100112

PATIENT
  Sex: Female
  Weight: 72.58 kg

DRUGS (6)
  1. DURAGESIC [Suspect]
     Indication: ARTHRITIS
     Route: 062
     Dates: start: 2013
  2. DURAGESIC [Suspect]
     Indication: CONNECTIVE TISSUE DISORDER
     Route: 062
     Dates: start: 2013
  3. UNSPECIFIED FENTANYL [Suspect]
     Indication: ARTHRITIS
     Route: 062
     Dates: start: 2013, end: 2013
  4. UNSPECIFIED FENTANYL [Suspect]
     Indication: CONNECTIVE TISSUE DISORDER
     Route: 062
     Dates: start: 2013, end: 2013
  5. PLAQUENIL [Concomitant]
     Indication: ARTHRITIS
     Route: 065
     Dates: start: 2013
  6. VICOPROFEN [Concomitant]
     Indication: PAIN
     Route: 065
     Dates: start: 2013

REACTIONS (4)
  - Wrong technique in drug usage process [Unknown]
  - Wrong technique in drug usage process [Not Recovered/Not Resolved]
  - Drug dose omission [Not Recovered/Not Resolved]
  - Product quality issue [Unknown]
